FAERS Safety Report 22288065 (Version 2)
Quarter: 2023Q2

REPORT INFORMATION
  Report Type: Spontaneous
  Country: BE (occurrence: BE)
  Receive Date: 20230505
  Receipt Date: 20230510
  Transmission Date: 20230721
  Serious: Yes (Other)
  Sender: FDA-Public Use
  Company Number: BE-MLMSERVICE-20230419-4221798-1

PATIENT
  Sex: Male

DRUGS (1)
  1. TOPIRAMATE [Suspect]
     Active Substance: TOPIRAMATE
     Indication: Action tremor

REACTIONS (1)
  - Bradycardia [Unknown]
